FAERS Safety Report 8710214 (Version 2)
Quarter: 2013Q4

REPORT INFORMATION
  Report Type: Spontaneous
  Country: US (occurrence: US)
  Receive Date: 20120807
  Receipt Date: 20131106
  Transmission Date: 20140711
  Serious: Yes (Hospitalization)
  Sender: FDA-Public Use
  Company Number: US-009507513-1207USA011511

PATIENT
  Age: 66 Year
  Sex: Male

DRUGS (2)
  1. VICTRELIS [Suspect]
     Dosage: 800 MG, TID
     Route: 048
  2. REBETOL [Suspect]
     Route: 048

REACTIONS (6)
  - Palpitations [Unknown]
  - Paraesthesia [Unknown]
  - Dyspnoea [Unknown]
  - Fatigue [Unknown]
  - Anaemia [Unknown]
  - Decreased appetite [Unknown]
